FAERS Safety Report 13356634 (Version 1)
Quarter: 2017Q1

REPORT INFORMATION
  Report Type: Report from Study
  Country: AR (occurrence: AR)
  Receive Date: 20170321
  Receipt Date: 20170321
  Transmission Date: 20170429
  Serious: Yes (Death, Other)
  Sender: FDA-Public Use
  Company Number: AR-BRISTOL-MYERS SQUIBB COMPANY-BMS-2017-023034

PATIENT
  Sex: Female

DRUGS (1)
  1. ELOTUZUMAB. [Suspect]
     Active Substance: ELOTUZUMAB
     Indication: PRODUCT USED FOR UNKNOWN INDICATION
     Dosage: 700 MG, QWK
     Route: 042
     Dates: start: 20160916, end: 20170210

REACTIONS (5)
  - Multiple organ dysfunction syndrome [Unknown]
  - Therapy non-responder [Unknown]
  - Death [Fatal]
  - Malignant neoplasm progression [Unknown]
  - Gastrointestinal haemorrhage [Unknown]
